FAERS Safety Report 12628539 (Version 2)
Quarter: 2016Q4

REPORT INFORMATION
  Report Type: Spontaneous
  Country: FR (occurrence: FR)
  Receive Date: 20160808
  Receipt Date: 20161006
  Transmission Date: 20170207
  Serious: No
  Sender: FDA-Public Use
  Company Number: FR-JAZZ-2016-FR-004657

PATIENT
  Age: 34 Year
  Sex: Male
  Weight: 100 kg

DRUGS (4)
  1. XYREM [Suspect]
     Active Substance: SODIUM OXYBATE
     Indication: NARCOLEPSY
     Dosage: 2.25 G, BID
     Route: 048
     Dates: start: 20150904
  2. XYREM [Suspect]
     Active Substance: SODIUM OXYBATE
     Dosage: 4.5 G, FOR SECOND INTAKE IN THE MIDDLE OF NIGHT
     Route: 048
     Dates: start: 20160225
  3. XYREM [Suspect]
     Active Substance: SODIUM OXYBATE
     Indication: CATAPLEXY
     Dosage: 9 G, FOR FIRST INTAKE OF SODIUM OXYBATE AT SLEEPING TIME
     Route: 048
     Dates: start: 20160225
  4. XYREM [Suspect]
     Active Substance: SODIUM OXYBATE
     Dosage: 4.5 G, QD
     Route: 048
     Dates: start: 2016

REACTIONS (3)
  - Accidental overdose [Recovered/Resolved]
  - Somnambulism [Recovered/Resolved]
  - Confusional arousal [Recovered/Resolved]

NARRATIVE: CASE EVENT DATE: 201602
